FAERS Safety Report 5379260-9 (Version None)
Quarter: 2007Q3

REPORT INFORMATION
  Report Type: 
  Country: None (occurrence: None)
  Receive Date: 20070705
  Receipt Date: 20070626
  Transmission Date: 20080115
  Serious: Yes (Other)
  Sender: FDA-Public Use
  Company Number: US-PFIZER INC-2007040842

PATIENT
  Sex: Male
  Weight: 81.6 kg

DRUGS (5)
  1. LYRICA [Suspect]
     Indication: NERVE INJURY
     Route: 048
     Dates: start: 20070516, end: 20070517
  2. VICODIN [Concomitant]
  3. RITALIN [Concomitant]
  4. ZOLOFT [Concomitant]
  5. SERAX [Concomitant]

REACTIONS (5)
  - ANXIETY [None]
  - BACK PAIN [None]
  - FEELING ABNORMAL [None]
  - INSOMNIA [None]
  - MALAISE [None]
